FAERS Safety Report 18776101 (Version 1)
Quarter: 2021Q1

REPORT INFORMATION
  Report Type: Spontaneous
  Country: US (occurrence: US)
  Receive Date: 20210123
  Receipt Date: 20210123
  Transmission Date: 20210419
  Serious: Yes (Hospitalization)
  Sender: FDA-Public Use
  Company Number: US-DRREDDYS-USA/USA/21/0131107

PATIENT
  Age: 31 Year
  Sex: Male

DRUGS (4)
  1. TETRABENAZINE TABLETS [Suspect]
     Active Substance: TETRABENAZINE
     Indication: BALLISMUS
  2. TETRABENAZINE TABLETS [Suspect]
     Active Substance: TETRABENAZINE
     Indication: CHOREA
  3. HALOPERIDOL. [Suspect]
     Active Substance: HALOPERIDOL
     Indication: BALLISMUS
  4. HALOPERIDOL. [Suspect]
     Active Substance: HALOPERIDOL
     Indication: CHOREA

REACTIONS (3)
  - Sedation [Unknown]
  - Mental status changes [Unknown]
  - Diarrhoea [Unknown]
